FAERS Safety Report 4703921-5 (Version None)
Quarter: 2005Q2

REPORT INFORMATION
  Report Type: 
  Country: None (occurrence: None)
  Receive Date: 20050628
  Receipt Date: 20050615
  Transmission Date: 20051028
  Serious: Yes (Hospitalization)
  Sender: FDA-Public Use
  Company Number: 2005BI009988

PATIENT
  Age: 42 Year
  Sex: Female

DRUGS (20)
  1. AVONEX [Suspect]
     Indication: RELAPSING-REMITTING MULTIPLE SCLEROSIS
     Dosage: 30 UG; QW; IM
     Route: 030
     Dates: start: 20020201
  2. AVONEX [Suspect]
     Indication: RELAPSING-REMITTING MULTIPLE SCLEROSIS
     Dosage: 30 UG; QW; IM
     Route: 030
     Dates: start: 20040425
  3. MULTI-VITAMIN [Concomitant]
  4. PREVACID [Concomitant]
  5. PROZAC [Concomitant]
  6. NEURONTIN [Concomitant]
  7. OXYCODONE HCL [Concomitant]
  8. SINGULAIR [Concomitant]
  9. XANAX [Concomitant]
  10. MOTRIN [Concomitant]
  11. BACLOFEN [Concomitant]
  12. PROVIGIL [Concomitant]
  13. IMITREX [Suspect]
  14. SPECTRACEF [Concomitant]
  15. BACTRIM DS [Concomitant]
  16. EXTRA STRENGTH TYLENOL [Concomitant]
  17. KADIAN   KNOLL [Concomitant]
  18. PREDNISONE TAB [Concomitant]
  19. ZANAFLEX [Concomitant]
  20. SOMA [Concomitant]

REACTIONS (2)
  - INTERVERTEBRAL DISC PROTRUSION [None]
  - SHOULDER PAIN [None]
